FAERS Safety Report 6569795-5 (Version None)
Quarter: 2010Q1

REPORT INFORMATION
  Report Type: 
  Country: None (occurrence: None)
  Receive Date: 20100202
  Receipt Date: 20100202
  Transmission Date: 20100710
  Serious: Yes (Other)
  Sender: FDA-Public Use
  Company Number: None

PATIENT
  Age: 61 Year
  Sex: Female
  Weight: 84.8226 kg

DRUGS (2)
  1. LISINOPRIL AND HYDROCHLOROTHIAZIDE [Suspect]
     Indication: HYPERTENSION
     Dosage: ONE TABLET ONE TIME DAILY BUCCAL
     Route: 002
     Dates: start: 20091112, end: 20100130
  2. CRESTOR [Suspect]
     Indication: BLOOD CHOLESTEROL ABNORMAL
     Dosage: ONE TABLET ONE TIME DAILY BUCCAL
     Route: 002
     Dates: start: 20091112, end: 20100130

REACTIONS (7)
  - ASTHENIA [None]
  - CHEST DISCOMFORT [None]
  - COUGH [None]
  - FATIGUE [None]
  - HYPOAESTHESIA [None]
  - MYALGIA [None]
  - OROPHARYNGEAL PAIN [None]
